FAERS Safety Report 7937949-9 (Version None)
Quarter: 2011Q4

REPORT INFORMATION
  Report Type: 
  Country: None (occurrence: None)
  Receive Date: 20111123
  Receipt Date: 20111110
  Transmission Date: 20120403
  Serious: Yes (Hospitalization)
  Sender: FDA-Public Use
  Company Number: US-ROCHE-1013310

PATIENT
  Age: 63 Year
  Sex: Female

DRUGS (6)
  1. AVASTIN [Suspect]
     Indication: ENDOMETRIAL CANCER
     Route: 042
     Dates: start: 20110510
  2. AVASTIN [Suspect]
     Route: 042
  3. CARBOPLATIN [Suspect]
     Indication: ENDOMETRIAL CANCER
     Route: 042
     Dates: start: 20110510
  4. CARBOPLATIN [Suspect]
     Route: 042
  5. PACLITAXEL [Suspect]
     Route: 042
  6. PACLITAXEL [Suspect]
     Indication: ENDOMETRIAL CANCER
     Route: 042
     Dates: start: 20110510

REACTIONS (5)
  - HYPERKALAEMIA [None]
  - DIARRHOEA [None]
  - BLOOD CREATININE INCREASED [None]
  - SYNCOPE [None]
  - DECREASED APPETITE [None]
